FAERS Safety Report 25213155 (Version 1)
Quarter: 2025Q2

REPORT INFORMATION
  Report Type: Spontaneous
  Country: DE (occurrence: DE)
  Receive Date: 20250418
  Receipt Date: 20250418
  Transmission Date: 20250717
  Serious: Yes (Other)
  Sender: PFIZER
  Company Number: DE-EMB-M202310279-1

PATIENT
  Sex: Female
  Weight: 67 kg

DRUGS (11)
  1. BRAFTOVI [Suspect]
     Active Substance: ENCORAFENIB
     Indication: Malignant melanoma stage IV
     Dosage: 450 MG/ DAILY
     Route: 048
     Dates: start: 202307, end: 202404
  2. MEKTOVI [Suspect]
     Active Substance: BINIMETINIB
     Indication: Malignant melanoma stage IV
     Route: 048
     Dates: start: 202307, end: 202404
  3. INFLUVAC TETRA [Concomitant]
     Active Substance: INFLUENZA VIRUS VACCINE QUADRIVALENT TYPE A+B
     Indication: Immunisation
     Route: 030
     Dates: start: 202312, end: 202312
  4. CHOLECALCIFEROL [Concomitant]
     Active Substance: CHOLECALCIFEROL
     Indication: Vitamin D deficiency
     Dosage: 500 IU/ DAY
     Route: 048
     Dates: start: 202307, end: 202404
  5. PROGESTERONE [Concomitant]
     Active Substance: PROGESTERONE
     Indication: Prophylaxis
     Route: 067
     Dates: start: 202307, end: 202310
  6. ESTRADIOL [Concomitant]
     Active Substance: ESTRADIOL
     Indication: Prophylaxis
     Route: 048
     Dates: start: 202307, end: 202310
  7. ASPIRIN [Concomitant]
     Active Substance: ASPIRIN
     Indication: Prophylaxis
     Dosage: 150 MG/ DAY POSSIBLY LONGER
     Route: 048
     Dates: start: 202307, end: 202312
  8. COMIRNATY (RAXTOZINAMERAN) [Concomitant]
     Active Substance: RAXTOZINAMERAN
     Indication: COVID-19 immunisation
     Route: 030
     Dates: start: 202401, end: 202401
  9. PROGESTERONE [Concomitant]
     Active Substance: PROGESTERONE
     Indication: Prophylaxis
     Dosage: 25 MG/ DAILY
     Route: 058
     Dates: start: 202308, end: 202309
  10. MINERALS\VITAMINS [Concomitant]
     Active Substance: MINERALS\VITAMINS
     Indication: Nutritional supplementation
     Dosage: UNK; 1/DAY UNTIL 12/2023 (POSSIBLY LONGER)
     Route: 065
     Dates: start: 202307
  11. MINERALS\VITAMINS [Concomitant]
     Active Substance: MINERALS\VITAMINS
     Indication: Prophylaxis of neural tube defect

REACTIONS (4)
  - Maternal exposure during pregnancy [Unknown]
  - Gestational diabetes [Recovered/Resolved]
  - Off label use [Unknown]
  - Product use issue [Unknown]

NARRATIVE: CASE EVENT DATE: 20230101
